FAERS Safety Report 17163421 (Version 1)
Quarter: 2019Q4

REPORT INFORMATION
  Report Type: Spontaneous
  Country: US (occurrence: US)
  Receive Date: 20191124
  Receipt Date: 20191124
  Transmission Date: 20200122
  Serious: Yes (Life-Threatening, Hospitalization)
  Sender: FDA-Public Use
  Company Number: None

PATIENT
  Age: 35 Year
  Sex: Female
  Weight: 92 kg

DRUGS (1)
  1. CEFTRIAXONE. [Suspect]
     Active Substance: CEFTRIAXONE
     Indication: UPPER RESPIRATORY TRACT INFECTION
     Route: 042
     Dates: start: 20191005, end: 20191005

REACTIONS (8)
  - Anaphylactic reaction [None]
  - Lip swelling [None]
  - Tachycardia [None]
  - Blood pressure systolic decreased [None]
  - Hypotension [None]
  - Urticaria [None]
  - Dizziness [None]
  - Mouth swelling [None]

NARRATIVE: CASE EVENT DATE: 20191005
